FAERS Safety Report 10737457 (Version 1)
Quarter: 2015Q1

REPORT INFORMATION
  Report Type: Spontaneous
  Country: US (occurrence: None)
  Receive Date: 20150122
  Receipt Date: 20150122
  Transmission Date: 20150721
  Serious: No
  Sender: FDA-Public Use
  Company Number: None

PATIENT
  Age: 33 Year
  Sex: Male

DRUGS (1)
  1. TEVA ETHYL ESTER OMEGA 3 1GM TEVA [Suspect]
     Active Substance: OMEGA-3-ACID ETHYL ESTERS
     Indication: BLOOD TRIGLYCERIDES INCREASED
     Dosage: 4 PILLS EVERY DAY, ONCE DAILY, TAKEN BY MOUTH
     Route: 048
     Dates: start: 20140416, end: 20150120

REACTIONS (5)
  - Product odour abnormal [None]
  - Product substitution issue [None]
  - Product taste abnormal [None]
  - Dizziness [None]
  - Product quality issue [None]

NARRATIVE: CASE EVENT DATE: 20150108
